FAERS Safety Report 24446116 (Version 1)
Quarter: 2024Q4

REPORT INFORMATION
  Report Type: Spontaneous
  Country: CN (occurrence: CN)
  Receive Date: 20241016
  Receipt Date: 20241016
  Transmission Date: 20250115
  Serious: Yes (Hospitalization)
  Sender: PFIZER
  Company Number: CN-PFIZER INC-PV202400132707

PATIENT
  Age: 9 Year
  Sex: Female
  Weight: 29.5 kg

DRUGS (3)
  1. CYTARABINE [Suspect]
     Active Substance: CYTARABINE
     Indication: Chemotherapy
     Dosage: 36 MG, 1X/DAY
     Route: 042
     Dates: start: 20240918, end: 20240918
  2. METHOTREXATE [Suspect]
     Active Substance: METHOTREXATE
     Indication: Chemotherapy
     Dosage: 23 MG, 1X/DAY
     Route: 041
     Dates: start: 20240918, end: 20240918
  3. VINCRISTINE SULFATE [Suspect]
     Active Substance: VINCRISTINE SULFATE
     Indication: Chemotherapy
     Dosage: 1.7 MG, 1X/DAY
     Route: 042
     Dates: start: 20240918, end: 20240918

REACTIONS (5)
  - Myelosuppression [Recovering/Resolving]
  - Pyrexia [Unknown]
  - Cough [Unknown]
  - Sputum retention [Unknown]
  - Dyspnoea [Unknown]

NARRATIVE: CASE EVENT DATE: 20240901
